FAERS Safety Report 8816370 (Version 1)
Quarter: 2012Q4

REPORT INFORMATION
  Report Type: Spontaneous
  Country: US (occurrence: None)
  Receive Date: 20120928
  Receipt Date: 20120928
  Transmission Date: 20130627
  Serious: Yes (Hospitalization, Other)
  Sender: FDA-Public Use
  Company Number: None

PATIENT
  Age: 34 Year
  Sex: Female
  Weight: 73.48 kg

DRUGS (1)
  1. LIPITOR [Suspect]
     Indication: MIGRAINE
     Dates: start: 201106, end: 20120501

REACTIONS (3)
  - Muscle tightness [None]
  - Migraine [None]
  - Drug ineffective [None]
